FAERS Safety Report 4629827-8 (Version None)
Quarter: 2005Q2

REPORT INFORMATION
  Report Type: 
  Country: None (occurrence: None)
  Receive Date: 20050407
  Receipt Date: 20050329
  Transmission Date: 20051028
  Serious: Yes (Disabling)
  Sender: FDA-Public Use
  Company Number: 2005UW02018

PATIENT
  Age: 72 Year
  Sex: Female

DRUGS (10)
  1. CRESTOR [Suspect]
     Indication: HYPERCHOLESTEROLAEMIA
     Dosage: 10 MG QD PO
     Route: 048
     Dates: start: 20030801, end: 20031101
  2. CRESTOR [Suspect]
     Indication: HYPERCHOLESTEROLAEMIA
     Dosage: 10 MG QD PO
     Route: 048
     Dates: start: 20031101, end: 20040301
  3. CRESTOR [Suspect]
     Indication: HYPERCHOLESTEROLAEMIA
     Dosage: DOSE INCREASED
     Dates: start: 20040301, end: 20040801
  4. CRESTOR [Suspect]
     Indication: HYPERCHOLESTEROLAEMIA
     Dates: start: 20041129, end: 20050107
  5. CRESTOR [Suspect]
     Indication: HYPERCHOLESTEROLAEMIA
     Dosage: LOW DOSE
     Dates: start: 20050128
  6. ZOLOFT [Concomitant]
  7. EFFEXOR [Concomitant]
  8. SOTALOL HCL [Concomitant]
  9. ATACAND [Concomitant]
  10. COUMADIN [Concomitant]

REACTIONS (2)
  - MUSCULOSKELETAL STIFFNESS [None]
  - ROTATOR CUFF SYNDROME [None]
